FAERS Safety Report 11363636 (Version 1)
Quarter: 2015Q3

REPORT INFORMATION
  Report Type: Spontaneous
  Country: None (occurrence: None)
  Receive Date: 20150810
  Receipt Date: 20150810
  Transmission Date: 20151125
  Serious: Yes (Other)
  Sender: FDA-Public Use
  Company Number: None

PATIENT
  Age: 22 Year
  Sex: Female
  Weight: 58.97 kg

DRUGS (3)
  1. VITAMIN GUMMIES [Concomitant]
  2. IRON SUPPLEMENTS [Concomitant]
     Active Substance: IRON
  3. MANTOUX [Suspect]
     Active Substance: TUBERCULIN PURIFIED PROTEIN DERIVATIVE (MANTOUX)

REACTIONS (5)
  - Disturbance in attention [None]
  - Oropharyngeal pain [None]
  - Pyrexia [None]
  - Fatigue [None]
  - Headache [None]

NARRATIVE: CASE EVENT DATE: 20150804
